FAERS Safety Report 18436363 (Version 1)
Quarter: 2020Q4

REPORT INFORMATION
  Report Type: Report from Study
  Country: US (occurrence: US)
  Receive Date: 20201028
  Receipt Date: 20201028
  Transmission Date: 20210114
  Serious: Yes (Hospitalization, Other)
  Sender: FDA-Public Use
  Company Number: US-GILEAD-2020-0501644

PATIENT
  Sex: Male

DRUGS (16)
  1. FLUTICASONE. [Concomitant]
     Active Substance: FLUTICASONE
  2. VFEND [Concomitant]
     Active Substance: VORICONAZOLE
  3. PULMOZYME [Concomitant]
     Active Substance: DORNASE ALFA
  4. AQUADEKS [Concomitant]
     Active Substance: MINERALS\VITAMINS
  5. AZTREONAM LYSINE [Suspect]
     Active Substance: AZTREONAM LYSINE
     Indication: CYSTIC FIBROSIS GASTROINTESTINAL DISEASE
     Dosage: 75 MG, TID; FOR 28 DAYS
     Route: 055
     Dates: start: 20170405
  6. HYPERSAL [Concomitant]
     Active Substance: SODIUM CHLORIDE
  7. OMEPRAZOLE. [Concomitant]
     Active Substance: OMEPRAZOLE
  8. PROAIR HFA [Concomitant]
     Active Substance: ALBUTEROL SULFATE
  9. COLISMETHANE [Concomitant]
  10. MIRTAZAPINE. [Concomitant]
     Active Substance: MIRTAZAPINE
  11. AZITHROMYCIN ANHYDROUS. [Concomitant]
     Active Substance: AZITHROMYCIN ANHYDROUS
  12. STRATTERA [Concomitant]
     Active Substance: ATOMOXETINE HYDROCHLORIDE
  13. VALINE [Concomitant]
     Active Substance: VALINE
  14. ADVAIR HFA [Concomitant]
     Active Substance: FLUTICASONE PROPIONATE\SALMETEROL XINAFOATE
  15. FEXOFENADINE [Concomitant]
     Active Substance: FEXOFENADINE HYDROCHLORIDE
  16. CREON [Concomitant]
     Active Substance: PANCRELIPASE AMYLASE\PANCRELIPASE LIPASE\PANCRELIPASE PROTEASE

REACTIONS (1)
  - Cystic fibrosis respiratory infection suppression [Not Recovered/Not Resolved]
